FAERS Safety Report 7287441-2 (Version None)
Quarter: 2011Q1

REPORT INFORMATION
  Report Type: 
  Country: None (occurrence: None)
  Receive Date: 20110211
  Receipt Date: 20110131
  Transmission Date: 20110831
  Serious: Yes (Hospitalization)
  Sender: FDA-Public Use
  Company Number: US-JNJFOC-20110201010

PATIENT
  Sex: Male
  Weight: 25 kg

DRUGS (5)
  1. MERCAPTOPURINE [Concomitant]
  2. NORDITROPIN [Concomitant]
  3. REMICADE [Suspect]
     Indication: CROHN'S DISEASE
     Route: 042
  4. ANTIBIOTICS [Concomitant]
     Indication: INFLAMMATORY BOWEL DISEASE
  5. REMICADE [Suspect]
     Route: 042

REACTIONS (1)
  - ABDOMINAL PAIN LOWER [None]
